FAERS Safety Report 13357613 (Version 1)
Quarter: 2017Q1

REPORT INFORMATION
  Report Type: Spontaneous
  Country: US (occurrence: US)
  Receive Date: 20170320
  Receipt Date: 20170320
  Transmission Date: 20170429
  Serious: No
  Sender: FDA-Public Use
  Company Number: None

PATIENT
  Age: 58 Year
  Sex: Female

DRUGS (1)
  1. PROLIA [Suspect]
     Active Substance: DENOSUMAB
     Indication: OSTEOPOROSIS
     Dosage: 60MG EVERY 6 MONTHS SUBCUTANEOUS
     Route: 058
     Dates: start: 20160808, end: 20170208

REACTIONS (2)
  - Gingival bleeding [None]
  - Platelet count decreased [None]

NARRATIVE: CASE EVENT DATE: 20160810
